FAERS Safety Report 21036852 (Version 1)
Quarter: 2022Q3

REPORT INFORMATION
  Report Type: Spontaneous
  Country: NL (occurrence: NL)
  Receive Date: 20220702
  Receipt Date: 20220702
  Transmission Date: 20221027
  Serious: Yes (Hospitalization)
  Sender: FDA-Public Use
  Company Number: None

PATIENT
  Age: 37 Year
  Sex: Male
  Weight: 75 kg

DRUGS (8)
  1. FLUOROURACIL [Suspect]
     Active Substance: FLUOROURACIL
     Indication: Colon cancer metastatic
     Dosage: INFUSION, 5-FU CONTINUOUSLY VIA PICC LINE, FOLINIC ACID AND OXALIPLATIN TREATMENT EVERY TWO WEEKS
     Dates: start: 20220510, end: 20220510
  2. OXALIPLATIN [Suspect]
     Active Substance: OXALIPLATIN
     Indication: Colon cancer metastatic
     Dosage: 5 MG/ML, 5-FU CONTINUOUSLY VIA PICC LINE, FOLINIC ACID AND OXALIPLATIN TREATMENT EVERY TWO WEEK
     Dates: start: 20220510, end: 20220510
  3. LEUCOVORIN [Suspect]
     Active Substance: LEUCOVORIN
     Indication: Colon cancer metastatic
     Dosage: 10 MG/ML, 5-FU CONTINUOUSLY VIA PICC LINE, FOLINIC ACID AND OXALIPLATIN TREATMENT EVERY TWO WEEK
     Dates: start: 20220510, end: 20220510
  4. DILTIAZEM [Concomitant]
     Active Substance: DILTIAZEM
     Dosage: STRENGTH: 120 MG, TABLET
  5. HERBALS\PLANTAGO OVATA LEAF [Concomitant]
     Active Substance: HERBALS\PLANTAGO OVATA LEAF
     Dosage: STRENGTH: 3.25 G, SACHET (GRANULES)
  6. ISOSORBIDE MONONITRATE [Concomitant]
     Active Substance: ISOSORBIDE MONONITRATE
     Dosage: STRENGTH: 25 MG, CAPSULE, MODIFIED-RELEASE CAPSULE
  7. BISACODYL [Concomitant]
     Active Substance: BISACODYL
     Dosage: STRENGTH: 5 MG, TABLET
  8. ISOSORBIDE MONONITRATE [Concomitant]
     Active Substance: ISOSORBIDE MONONITRATE
     Dosage: STRENGTH: 50 MG, CAPSULE, MODIFIED-RELEASE CAPSULE

REACTIONS (1)
  - Arteriospasm coronary [Recovered/Resolved]

NARRATIVE: CASE EVENT DATE: 20220510
